FAERS Safety Report 8826298 (Version 2)
Quarter: 2013Q2

REPORT INFORMATION
  Report Type: Spontaneous
  Country: US (occurrence: US)
  Receive Date: 20121005
  Receipt Date: 20130611
  Transmission Date: 20140414
  Serious: No
  Sender: FDA-Public Use
  Company Number: US-PFIZER INC-2012242871

PATIENT
  Sex: Female

DRUGS (4)
  1. PREMPRO [Suspect]
     Dosage: UNK
     Dates: end: 201305
  2. PROTONIX [Suspect]
     Indication: GASTROOESOPHAGEAL REFLUX DISEASE
     Dosage: UNK
     Dates: end: 201305
  3. NEURONTIN [Suspect]
     Dosage: UNK
     Dates: end: 201305
  4. ZOLOFT [Suspect]
     Dosage: UNK
     Dates: end: 201305

REACTIONS (3)
  - Herpes zoster [Unknown]
  - Depression [Unknown]
  - Gastrooesophageal reflux disease [Unknown]
